FAERS Safety Report 5973689-3 (Version None)
Quarter: 2008Q4

REPORT INFORMATION
  Report Type: 
  Country: None (occurrence: None)
  Receive Date: 20081201
  Receipt Date: 20081124
  Transmission Date: 20090506
  Serious: Yes (Hospitalization)
  Sender: FDA-Public Use
  Company Number: DE-ROXANE LABORATORIES, INC.-2008-RO-00277RO

PATIENT
  Age: 82 Year
  Sex: Female

DRUGS (5)
  1. PREDNISONE TAB [Suspect]
     Indication: POLYARTHRITIS
     Dosage: 15MG
  2. PREDNISONE TAB [Suspect]
     Dosage: 10MG
  3. METHOTREXATE [Suspect]
     Indication: RHEUMATOID ARTHRITIS
     Route: 058
  4. FOLIC ACID [Suspect]
     Indication: RHEUMATOID ARTHRITIS
  5. FOLIC ACID [Suspect]
     Indication: SUPPLEMENTATION THERAPY

REACTIONS (5)
  - ALVEOLITIS ALLERGIC [None]
  - CD4 LYMPHOCYTES DECREASED [None]
  - LYMPHOPENIA [None]
  - NEUROTOXICITY [None]
  - RHEUMATOID ARTHRITIS [None]
